FAERS Safety Report 7965530-4 (Version None)
Quarter: 2011Q4

REPORT INFORMATION
  Report Type: 
  Country: None (occurrence: None)
  Receive Date: 20111208
  Receipt Date: 20111128
  Transmission Date: 20120403
  Serious: Yes (Other)
  Sender: FDA-Public Use
  Company Number: CA-JNJFOC-20111201945

PATIENT
  Sex: Female
  Weight: 57 kg

DRUGS (2)
  1. REMICADE [Suspect]
  2. REMICADE [Suspect]
     Indication: COLITIS ULCERATIVE
     Dosage: 37TH INFLIXIMAB TREATMENT
     Dates: start: 20111128

REACTIONS (2)
  - BENIGN TUMOUR EXCISION [None]
  - ANGINA PECTORIS [None]
